FAERS Safety Report 12915397 (Version 2)
Quarter: 2016Q4

REPORT INFORMATION
  Report Type: Spontaneous
  Country: US (occurrence: US)
  Receive Date: 20161106
  Receipt Date: 20161110
  Transmission Date: 20170207
  Serious: Yes (Death, Other)
  Sender: FDA-Public Use
  Company Number: US-RELYPSA-RLY2016002833

PATIENT
  Age: 88 Year
  Sex: Female

DRUGS (4)
  1. VITAMIN D [Concomitant]
     Active Substance: CHOLECALCIFEROL
  2. VELTASSA [Suspect]
     Active Substance: PATIROMER
     Indication: HYPERKALAEMIA
     Dosage: 8.4 G, 4 TIMES A WEEK
     Route: 048
     Dates: start: 201604, end: 20161023
  3. PRESERVISION [Concomitant]
     Active Substance: MINERALS\VITAMINS
  4. MORPHINE [Concomitant]
     Active Substance: MORPHINE

REACTIONS (8)
  - Rib fracture [Unknown]
  - Fall [Recovered/Resolved]
  - Nausea [Unknown]
  - Inappropriate schedule of drug administration [Not Recovered/Not Resolved]
  - Pneumonia [Unknown]
  - Drug dose omission [Recovered/Resolved]
  - Death [Fatal]
  - Abdominal discomfort [Unknown]

NARRATIVE: CASE EVENT DATE: 201610
